FAERS Safety Report 17060938 (Version 1)
Quarter: 2019Q4

REPORT INFORMATION
  Report Type: Spontaneous
  Country: CA (occurrence: CA)
  Receive Date: 20191121
  Receipt Date: 20191121
  Transmission Date: 20200122
  Serious: Yes (Other)
  Sender: FDA-Public Use
  Company Number: NVSC2019CA042405

PATIENT

DRUGS (3)
  1. TRAVATAN [Suspect]
     Active Substance: TRAVOPROST
     Indication: INTRAOCULAR PRESSURE TEST ABNORMAL
     Route: 065
  2. TRAVATAN [Suspect]
     Active Substance: TRAVOPROST
     Route: 065
  3. TIMOLOL. [Suspect]
     Active Substance: TIMOLOL
     Indication: INTRAOCULAR PRESSURE INCREASED
     Dosage: UNK, BID
     Route: 065

REACTIONS (10)
  - Reynold^s syndrome [Recovering/Resolving]
  - Anxiety [Unknown]
  - Mood swings [Unknown]
  - Vision blurred [Unknown]
  - Concomitant disease aggravated [Recovering/Resolving]
  - Peripheral circulatory failure [Unknown]
  - Eyelash discolouration [Unknown]
  - Visual impairment [Unknown]
  - Dizziness [Unknown]
  - Dry eye [Unknown]
